FAERS Safety Report 9002524 (Version 3)
Quarter: 2013Q1

REPORT INFORMATION
  Report Type: Spontaneous
  Country: US (occurrence: US)
  Receive Date: 20130107
  Receipt Date: 20130221
  Transmission Date: 20140127
  Serious: Yes (Life-Threatening, Hospitalization)
  Sender: FDA-Public Use
  Company Number: US-CELGENEUS-163-21880-12114050

PATIENT
  Age: 55 Year
  Sex: Female
  Weight: 81.72 kg

DRUGS (5)
  1. REVLIMID [Suspect]
     Indication: AMYLOIDOSIS
     Dosage: 25-10MG
     Route: 048
     Dates: start: 2005
  2. REVLIMID [Suspect]
     Dosage: 10 MILLIGRAM
     Route: 048
     Dates: start: 200710
  3. REVLIMID [Suspect]
     Dosage: 5MG-15MG
     Route: 048
     Dates: start: 200907
  4. REVLIMID [Suspect]
     Dosage: 10 MILLIGRAM
     Route: 048
     Dates: start: 201010, end: 20120831
  5. ALBUTEROL [Concomitant]
     Indication: PRODUCT USED FOR UNKNOWN INDICATION
     Route: 065

REACTIONS (5)
  - Herpes zoster disseminated [Recovered/Resolved]
  - White blood cell count decreased [Recovered/Resolved with Sequelae]
  - Hepatitis [Recovered/Resolved]
  - Gastroenteritis [Recovered/Resolved]
  - Pneumonitis [Recovered/Resolved]
